FAERS Safety Report 6267849-4 (Version None)
Quarter: 2009Q3

REPORT INFORMATION
  Report Type: 
  Country: None (occurrence: None)
  Receive Date: 20090714
  Receipt Date: 20090708
  Transmission Date: 20100115
  Serious: Yes (Other)
  Sender: FDA-Public Use
  Company Number: US-GENENTECH-285453

PATIENT
  Sex: Female
  Weight: 76.644 kg

DRUGS (21)
  1. XOLAIR [Suspect]
     Indication: ASTHMA
     Dosage: 150 MG, UNK
     Route: 058
     Dates: start: 20090521
  2. SINGULAIR [Concomitant]
     Indication: ASTHMA
     Dosage: UNK
  3. ZYRTEC [Concomitant]
     Indication: HYPERSENSITIVITY
     Dosage: UNK
  4. MUCINEX [Concomitant]
     Indication: HYPERSENSITIVITY
     Dosage: UNK
  5. NASALCROM [Concomitant]
     Indication: HYPERSENSITIVITY
     Dosage: UNK
  6. NASACORT [Concomitant]
     Indication: DRUG USE FOR UNKNOWN INDICATION
  7. PATANASE [Concomitant]
     Indication: DRUG USE FOR UNKNOWN INDICATION
  8. ADVAIR HFA [Concomitant]
     Indication: DRUG USE FOR UNKNOWN INDICATION
     Dosage: UNK
  9. QVAR 40 [Concomitant]
     Indication: ASTHMA
     Dosage: UNK
  10. DYAZIDE [Concomitant]
     Indication: DRUG USE FOR UNKNOWN INDICATION
     Dosage: UNK
  11. AMARYL [Concomitant]
     Indication: DRUG USE FOR UNKNOWN INDICATION
     Dosage: UNK
  12. ZOCOR [Concomitant]
     Indication: DRUG USE FOR UNKNOWN INDICATION
     Dosage: 10 MG, UNK
  13. LIPOFLAVONOID [Concomitant]
     Indication: DRUG USE FOR UNKNOWN INDICATION
  14. BORIC ACID [Concomitant]
     Indication: DRUG USE FOR UNKNOWN INDICATION
  15. ULTRAM [Concomitant]
     Indication: DRUG USE FOR UNKNOWN INDICATION
  16. VENTOLIN DS [Concomitant]
     Indication: ASTHMA
     Dosage: UNK
  17. CALTRATE + D [Concomitant]
     Indication: DRUG USE FOR UNKNOWN INDICATION
     Dosage: UNK
  18. CENTRUM [Concomitant]
     Indication: DRUG USE FOR UNKNOWN INDICATION
  19. FLAXSEED OIL [Concomitant]
     Indication: DRUG USE FOR UNKNOWN INDICATION
  20. FISH OIL [Concomitant]
     Indication: DRUG USE FOR UNKNOWN INDICATION
  21. NASONEX [Concomitant]
     Indication: HYPERSENSITIVITY
     Dosage: UNK

REACTIONS (3)
  - COUGH [None]
  - DYSPNOEA [None]
  - THROAT IRRITATION [None]
